FAERS Safety Report 5832963-1 (Version None)
Quarter: 2008Q3

REPORT INFORMATION
  Report Type: 
  Country: None (occurrence: None)
  Receive Date: 20080804
  Receipt Date: 20080730
  Transmission Date: 20090109
  Serious: Yes (Hospitalization)
  Sender: FDA-Public Use
  Company Number: US-GENENTECH-265461

PATIENT
  Sex: Male

DRUGS (6)
  1. BEVACIZUMAB [Suspect]
     Indication: NON-SMALL CELL LUNG CANCER
     Dosage: 1470 MG, Q3W
     Route: 042
     Dates: start: 20080428
  2. BEVACIZUMAB [Suspect]
     Indication: METASTASES TO CENTRAL NERVOUS SYSTEM
  3. PACLITAXEL [Concomitant]
     Indication: NON-SMALL CELL LUNG CANCER
     Dosage: 387 MG, Q3W
     Route: 042
     Dates: start: 20080407
  4. PACLITAXEL [Concomitant]
     Indication: METASTASES TO CENTRAL NERVOUS SYSTEM
  5. CARBOPLATIN [Concomitant]
     Indication: NON-SMALL CELL LUNG CANCER
     Dosage: 1058 MG, Q3W
     Route: 042
     Dates: start: 20080407
  6. CARBOPLATIN [Concomitant]
     Indication: METASTASES TO CENTRAL NERVOUS SYSTEM

REACTIONS (2)
  - HAEMORRHOIDS [None]
  - PERIRECTAL ABSCESS [None]
